FAERS Safety Report 10662055 (Version 1)
Quarter: 2014Q4

REPORT INFORMATION
  Report Type: Spontaneous
  Country: US (occurrence: None)
  Receive Date: 20141216
  Receipt Date: 20141216
  Transmission Date: 20150529
  Serious: Yes (Other)
  Sender: FDA-Public Use
  Company Number: DEP_02388_2014

PATIENT
  Age: 71 Year
  Sex: Male
  Weight: 65.77 kg

DRUGS (8)
  1. GRALISE [Suspect]
     Active Substance: GABAPENTIN
     Indication: SPINAL COLUMN STENOSIS
     Dosage: SAMPLE PACK,
     Route: 048
     Dates: start: 20141120, end: 20141126
  2. TOPAMAX [Concomitant]
     Active Substance: TOPIRAMATE
  3. GRALISE [Suspect]
     Active Substance: GABAPENTIN
     Indication: NERVOUS SYSTEM DISORDER
     Dosage: SAMPLE PACK,
     Route: 048
     Dates: start: 20141120, end: 20141126
  4. GRALISE [Suspect]
     Active Substance: GABAPENTIN
     Indication: HEADACHE
     Dosage: SAMPLE PACK,
     Route: 048
     Dates: start: 20141120, end: 20141126
  5. GRALISE [Suspect]
     Active Substance: GABAPENTIN
     Indication: OFF LABEL USE
     Dosage: SAMPLE PACK,
     Route: 048
     Dates: start: 20141120, end: 20141126
  6. AZOR/06230801/ (UNKNOWN) [Concomitant]
  7. MIRTAZAPINE. [Concomitant]
     Active Substance: MIRTAZAPINE
  8. LEXAPRO [Concomitant]
     Active Substance: ESCITALOPRAM OXALATE

REACTIONS (7)
  - Dysgraphia [None]
  - Balance disorder [None]
  - Drug titration error [None]
  - Cognitive disorder [None]
  - Middle insomnia [None]
  - Dizziness [None]
  - Confusional state [None]

NARRATIVE: CASE EVENT DATE: 201411
